FAERS Safety Report 6741107-3 (Version None)
Quarter: 2010Q2

REPORT INFORMATION
  Report Type: 
  Country: None (occurrence: None)
  Receive Date: 20100526
  Receipt Date: 20100512
  Transmission Date: 20101027
  Serious: Yes (Other)
  Sender: FDA-Public Use
  Company Number: PHHY2010JP32645

PATIENT
  Sex: Male

DRUGS (5)
  1. MIKELAN LA 2% (NVO) [Suspect]
     Indication: OPEN ANGLE GLAUCOMA
     Dosage: 1 GTT, QD
     Route: 047
     Dates: start: 20090603
  2. TRUSOPT [Concomitant]
     Dosage: UNK
     Dates: start: 20090603
  3. CRAVIT [Concomitant]
     Dosage: UNK
     Dates: start: 20090603
  4. FLUMETHOLON [Concomitant]
     Dosage: UNK
     Dates: start: 20090603
  5. LUMIGAN [Concomitant]
     Dosage: UNK
     Dates: start: 20091109

REACTIONS (1)
  - OPTIC ATROPHY [None]
